FAERS Safety Report 20382706 (Version 1)
Quarter: 2022Q1

REPORT INFORMATION
  Report Type: Spontaneous
  Country: US (occurrence: None)
  Receive Date: 20220127
  Receipt Date: 20220127
  Transmission Date: 20220423
  Serious: No
  Sender: FDA-Public Use
  Company Number: None

PATIENT
  Age: 83 Year
  Sex: Male
  Weight: 62.60 kg

DRUGS (1)
  1. ALLOPURINOL [Suspect]
     Active Substance: ALLOPURINOL
     Indication: Gout
     Dosage: FREQUENCY : DAILY;?
     Route: 048
     Dates: start: 20210520, end: 20210728

REACTIONS (2)
  - Drug reaction with eosinophilia and systemic symptoms [None]
  - Urticaria [None]

NARRATIVE: CASE EVENT DATE: 20211008
